FAERS Safety Report 17781001 (Version 2)
Quarter: 2020Q3

REPORT INFORMATION
  Report Type: Spontaneous
  Country: US (occurrence: US)
  Receive Date: 20200513
  Receipt Date: 20200821
  Transmission Date: 20201102
  Serious: No
  Sender: FDA-Public Use
  Company Number: US-009507513-2005USA003553

PATIENT
  Sex: Female

DRUGS (1)
  1. ALBUTEROL SULFATE. [Suspect]
     Active Substance: ALBUTEROL SULFATE
     Indication: CHEST PAIN
     Dosage: 2 DOSAGE FORM (2 PUFFS BY MOUTH EVERY 4 TO 6 HOURS)
     Dates: start: 20200317

REACTIONS (5)
  - Product dose omission issue [Unknown]
  - Product use in unapproved indication [Unknown]
  - Poor quality device used [Unknown]
  - No adverse event [Unknown]
  - Product quality issue [Unknown]

NARRATIVE: CASE EVENT DATE: 20200317
